FAERS Safety Report 18173531 (Version 1)
Quarter: 2020Q3

REPORT INFORMATION
  Report Type: Spontaneous
  Country: CA (occurrence: CA)
  Receive Date: 20200820
  Receipt Date: 20200820
  Transmission Date: 20201103
  Serious: Yes (Hospitalization)
  Sender: FDA-Public Use
  Company Number: CA-ORION CORPORATION ORION PHARMA-20_00010393

PATIENT
  Age: 93 Year
  Sex: Male

DRUGS (1)
  1. METHOTREXATE (TRADE NAME UNKNOWN) [Suspect]
     Active Substance: METHOTREXATE
     Indication: DERMATITIS
     Route: 048

REACTIONS (4)
  - Pancreatic duct dilatation [Unknown]
  - Liver function test increased [Unknown]
  - Biliary dilatation [Unknown]
  - Product use in unapproved indication [Unknown]
